FAERS Safety Report 7965269-5 (Version None)
Quarter: 2011Q4

REPORT INFORMATION
  Report Type: 
  Country: None (occurrence: None)
  Receive Date: 20111208
  Receipt Date: 20111128
  Transmission Date: 20120403
  Serious: Yes (Other)
  Sender: FDA-Public Use
  Company Number: US-BAYER-2011-044958

PATIENT
  Age: 31 Year
  Sex: Female
  Weight: 90.703 kg

DRUGS (3)
  1. YAZ [Suspect]
     Indication: MENSTRUATION IRREGULAR
     Dosage: UNK
     Dates: start: 20090401, end: 20090601
  2. LEVOTHYROXINE SODIUM [Concomitant]
     Indication: HYPERTHYROIDISM
     Dosage: UNK
     Dates: start: 20040101
  3. IBUPROFEN [Concomitant]

REACTIONS (15)
  - GENERAL PHYSICAL HEALTH DETERIORATION [None]
  - CEREBROVASCULAR ACCIDENT [None]
  - DIZZINESS [None]
  - DROOLING [None]
  - DYSARTHRIA [None]
  - FACIAL PAIN [None]
  - NAUSEA [None]
  - VIITH NERVE PARALYSIS [None]
  - ANXIETY [None]
  - HEADACHE [None]
  - PAIN [None]
  - TRANSIENT ISCHAEMIC ATTACK [None]
  - INJURY [None]
  - EMOTIONAL DISTRESS [None]
  - ASTHENIA [None]
